FAERS Safety Report 9057962 (Version 1)
Quarter: 2013Q1

REPORT INFORMATION
  Report Type: Spontaneous
  Country: US (occurrence: None)
  Receive Date: 20130204
  Receipt Date: 20130204
  Transmission Date: 20140127
  Serious: No
  Sender: FDA-Public Use
  Company Number: None

PATIENT
  Age: 56 Year
  Sex: Female

DRUGS (1)
  1. AVONEX 30MCG BIOGEN [Suspect]
     Indication: MULTIPLE SCLEROSIS
     Route: 058
     Dates: start: 20120816

REACTIONS (8)
  - Multiple sclerosis [None]
  - Rash [None]
  - Oral disorder [None]
  - Fall [None]
  - Loss of consciousness [None]
  - Cerebrovascular accident [None]
  - Convulsion [None]
  - Herpes zoster [None]
